FAERS Safety Report 22289821 (Version 1)
Quarter: 2023Q2

REPORT INFORMATION
  Report Type: Spontaneous
  Country: US (occurrence: None)
  Receive Date: 20230504
  Receipt Date: 20230504
  Transmission Date: 20230721
  Serious: Yes (Other)
  Sender: FDA-Public Use
  Company Number: None

PATIENT
  Age: 60 Year
  Sex: Female
  Weight: 74.25 kg

DRUGS (1)
  1. ALCOHOL [Suspect]
     Active Substance: ALCOHOL
     Indication: Infection prophylaxis
     Dosage: OTHER QUANTITY : 1 750 + 375 ML;?
     Route: 061
     Dates: start: 20230504, end: 20230504

REACTIONS (1)
  - Product packaging issue [None]

NARRATIVE: CASE EVENT DATE: 20230504
